FAERS Safety Report 6435424-4 (Version None)
Quarter: 2009Q4

REPORT INFORMATION
  Report Type: 
  Country: None (occurrence: None)
  Receive Date: 20091110
  Receipt Date: 20091102
  Transmission Date: 20100525
  Serious: Yes (Other)
  Sender: FDA-Public Use
  Company Number: JP-GENENTECH-293809

PATIENT
  Age: 67 Year
  Sex: Male

DRUGS (5)
  1. AVASTIN [Suspect]
     Indication: MACULAR OEDEMA
     Dosage: 1 MG, UNK
     Route: 031
  2. AVASTIN [Suspect]
     Indication: RETINAL VEIN OCCLUSION
  3. LIDOCAINE HYDROCHLORIDE [Concomitant]
     Indication: PREMEDICATION
     Dosage: 4 %, UNK
  4. POVIDONE IODINE [Concomitant]
     Indication: PREMEDICATION
     Dosage: 0.625 %, UNK
  5. LEVOFLOXACIN [Concomitant]
     Indication: DRUG USE FOR UNKNOWN INDICATION

REACTIONS (1)
  - EYE INFLAMMATION [None]
